FAERS Safety Report 9139587 (Version 3)
Quarter: 2013Q3

REPORT INFORMATION
  Report Type: Report from Study
  Country: CA (occurrence: CA)
  Receive Date: 20130305
  Receipt Date: 20130904
  Transmission Date: 20140515
  Serious: Yes (Other)
  Sender: FDA-Public Use
  Company Number: CA-JNJFOC-20130100274

PATIENT
  Age: 35 Year
  Sex: Female
  Weight: 70.31 kg

DRUGS (10)
  1. REMICADE [Suspect]
     Indication: CROHN^S DISEASE
     Route: 042
     Dates: start: 20110609
  2. REMICADE [Suspect]
     Indication: CROHN^S DISEASE
     Route: 042
     Dates: start: 2012, end: 201304
  3. REMICADE [Suspect]
     Indication: COLITIS
     Route: 042
     Dates: start: 20110609
  4. REMICADE [Suspect]
     Indication: COLITIS
     Route: 042
     Dates: start: 2012, end: 201304
  5. REACTINE [Concomitant]
     Indication: PREMEDICATION
     Route: 065
  6. TYLENOL [Concomitant]
     Indication: PREMEDICATION
     Route: 048
  7. TYLENOL [Concomitant]
     Indication: PREMEDICATION
     Route: 048
  8. METHOTREXATE [Concomitant]
     Dosage: STOPPED ONE YEAR AGO
     Route: 065
  9. SOLU-CORTEF [Concomitant]
     Indication: PREMEDICATION
     Route: 042
  10. BENADRYL [Concomitant]
     Indication: PREMEDICATION
     Route: 042

REACTIONS (12)
  - Infusion related reaction [Unknown]
  - Chest discomfort [Unknown]
  - Arthralgia [Unknown]
  - Fluid retention [Unknown]
  - Weight increased [Unknown]
  - Drug ineffective [Unknown]
  - Headache [Unknown]
  - Nausea [Unknown]
  - Acne [Unknown]
  - Rash [Recovered/Resolved]
  - Throat tightness [Unknown]
  - Abdominal pain [Unknown]
